FAERS Safety Report 9871624 (Version 1)
Quarter: 2014Q1

REPORT INFORMATION
  Report Type: Report from Study
  Country: BR (occurrence: BR)
  Receive Date: 20140205
  Receipt Date: 20140205
  Transmission Date: 20141002
  Serious: Yes (Hospitalization)
  Sender: FDA-Public Use
  Company Number: BR-US-EMD SERONO, INC.-7266516

PATIENT
  Sex: Female

DRUGS (6)
  1. REBIF [Suspect]
     Indication: RELAPSING-REMITTING MULTIPLE SCLEROSIS
     Dates: start: 20020429, end: 20040101
  2. REBIF [Suspect]
     Dates: start: 20091112, end: 20100901
  3. REBIF [Suspect]
     Dates: start: 20040101, end: 20041113
  4. REBIF [Suspect]
     Dates: start: 20100902, end: 20120801
  5. REBIF [Suspect]
     Dates: start: 20130304
  6. METHOTREXATE [Concomitant]
     Indication: PRODUCT USED FOR UNKNOWN INDICATION

REACTIONS (2)
  - Muscle twitching [Recovering/Resolving]
  - Convulsion [Recovering/Resolving]
